FAERS Safety Report 6184685-8 (Version None)
Quarter: 2009Q2

REPORT INFORMATION
  Report Type: 
  Country: None (occurrence: None)
  Receive Date: 20090508
  Receipt Date: 20090427
  Transmission Date: 20091009
  Serious: Yes (Other)
  Sender: FDA-Public Use
  Company Number: FR-PFIZER INC-2009203773

PATIENT
  Age: 62 Year

DRUGS (4)
  1. NEURONTIN [Suspect]
     Indication: NEURALGIA
     Dosage: 800 MG IN THE MORNING +800 MG AT NOON +600 MG IN THE EVENING / DAY
  2. LYRICA [Suspect]
     Indication: NEURALGIA
     Dosage: UNK MG, UNK
  3. DRUG, UNSPECIFIED [Concomitant]
     Dosage: UNK
  4. CHLORAMINOPHENE [Concomitant]
     Dosage: UNK

REACTIONS (2)
  - GASTRIC ULCER [None]
  - HEMIANOPIA [None]
